FAERS Safety Report 9728341 (Version 1)
Quarter: 2013Q4

REPORT INFORMATION
  Report Type: Spontaneous
  Country: US (occurrence: None)
  Receive Date: 20131203
  Receipt Date: 20131203
  Transmission Date: 20140711
  Serious: No
  Sender: FDA-Public Use
  Company Number: None

PATIENT
  Sex: Female
  Weight: 63.96 kg

DRUGS (1)
  1. ARMOUR THYROID [Suspect]
     Indication: HEART RATE DECREASED
     Dosage: A.M.

REACTIONS (2)
  - Fatigue [None]
  - Asthenia [None]
